FAERS Safety Report 5926708-4 (Version None)
Quarter: 2008Q4

REPORT INFORMATION
  Report Type: 
  Country: None (occurrence: None)
  Receive Date: 20081022
  Receipt Date: 20081021
  Transmission Date: 20090506
  Serious: Yes (Death, Life-Threatening, Hospitalization)
  Sender: FDA-Public Use
  Company Number: DE-BAYER-200816837GPV

PATIENT
  Age: 67 Year
  Sex: Female
  Weight: 78 kg

DRUGS (21)
  1. AVELOX [Suspect]
     Indication: PNEUMONIA
     Route: 065
     Dates: start: 20080315, end: 20080323
  2. PIPERACILLIN [Concomitant]
     Indication: PNEUMONIA
     Dosage: TOTAL DAILY DOSE: 12 G  UNIT DOSE: 4 G
     Route: 065
     Dates: start: 20080315, end: 20080323
  3. COMBACTAM [Concomitant]
     Indication: PNEUMONIA
     Dosage: TOTAL DAILY DOSE: 2 G  UNIT DOSE: 1 G
     Route: 065
     Dates: start: 20080315, end: 20080323
  4. ACYCLOVIR [Concomitant]
     Indication: HERPES SIMPLEX
     Route: 065
  5. ROXITHROMYCIN [Concomitant]
     Indication: DRUG USE FOR UNKNOWN INDICATION
     Dosage: TOTAL DAILY DOSE: 150 MG  UNIT DOSE: 150 MG
     Route: 065
     Dates: start: 20080308, end: 20080315
  6. CEFTRIAXON [Concomitant]
     Indication: DRUG USE FOR UNKNOWN INDICATION
     Dosage: TOTAL DAILY DOSE: 2 G  UNIT DOSE: 2 G
     Route: 065
     Dates: start: 20080308, end: 20080315
  7. NEXIUM [Concomitant]
     Indication: PROPHYLAXIS
     Route: 065
  8. NEXIUM [Concomitant]
     Dosage: AS USED: 20 MG  UNIT DOSE: 20 MG
     Route: 065
     Dates: start: 20080315
  9. NOVAMINSULFON [Concomitant]
     Indication: PAIN
     Dosage: TOTAL DAILY DOSE: 60 GTT
     Route: 048
     Dates: start: 20080315, end: 20080401
  10. MARCUMAR [Concomitant]
     Indication: ATRIAL THROMBOSIS
     Route: 065
  11. NOREPINEPHRINE BITARTRATE [Concomitant]
     Indication: DRUG USE FOR UNKNOWN INDICATION
     Route: 065
  12. CLEXANE [Concomitant]
     Indication: DRUG USE FOR UNKNOWN INDICATION
     Dosage: TOTAL DAILY DOSE: 0.4 MG
     Route: 065
  13. ORGARAN [Concomitant]
     Indication: DRUG USE FOR UNKNOWN INDICATION
     Route: 065
  14. ACETYLCYSTEINE [Concomitant]
     Indication: DRUG USE FOR UNKNOWN INDICATION
     Route: 065
  15. BELOC ZOK [Concomitant]
     Indication: DRUG USE FOR UNKNOWN INDICATION
     Route: 065
  16. EUTHYROX [Concomitant]
     Indication: DRUG USE FOR UNKNOWN INDICATION
     Dosage: TOTAL DAILY DOSE: 75 ?G
     Route: 065
  17. MORPHINE [Concomitant]
     Route: 065
  18. LACTULOSE [Concomitant]
     Indication: DRUG USE FOR UNKNOWN INDICATION
     Route: 065
  19. MEROPENEM [Concomitant]
     Indication: PNEUMONIA
     Route: 065
  20. ZYVOXID [Concomitant]
     Indication: ENTEROCOCCAL INFECTION
     Route: 065
  21. DIFLUCAN [Concomitant]
     Indication: ENTEROCOCCAL INFECTION
     Route: 065

REACTIONS (8)
  - ACUTE HEPATIC FAILURE [None]
  - AMMONIA INCREASED [None]
  - BLOOD BILIRUBIN INCREASED [None]
  - DEATH [None]
  - GAMMA-GLUTAMYLTRANSFERASE INCREASED [None]
  - HEPATIC ENCEPHALOPATHY [None]
  - LIVER FUNCTION TEST ABNORMAL [None]
  - TRANSAMINASES INCREASED [None]
